FAERS Safety Report 8956457 (Version 1)
Quarter: 2012Q4

REPORT INFORMATION
  Report Type: 
  Country: BR (occurrence: BR)
  Receive Date: 20121210
  Receipt Date: 20121210
  Transmission Date: 20130627
  Serious: Yes (Other)
  Sender: FDA-Public Use
  Company Number: BR-PFIZER INC-2012307563

PATIENT
  Sex: Female

DRUGS (1)
  1. LYRICA [Suspect]
     Dosage: 75 mg, UNK

REACTIONS (7)
  - Dyspnoea [Unknown]
  - Hypotension [Unknown]
  - Blood pressure increased [Unknown]
  - Swelling face [Not Recovered/Not Resolved]
  - Heart rate decreased [Unknown]
  - Vomiting [Unknown]
  - Dysgeusia [Unknown]
